FAERS Safety Report 6919924-6 (Version None)
Quarter: 2010Q3

REPORT INFORMATION
  Report Type: 
  Country: None (occurrence: None)
  Receive Date: 20100811
  Receipt Date: 20100729
  Transmission Date: 20110219
  Serious: Yes (Hospitalization, Congenital Anomaly, Other)
  Sender: FDA-Public Use
  Company Number: PHRM2008FR01218

PATIENT
  Weight: 1.222 kg

DRUGS (2)
  1. NEORAL [Suspect]
     Dosage: MATERNAL DOSE: UNKNOWN
     Route: 064
  2. CORTICOSTEROIDS [Concomitant]
     Dosage: MATERNAL DOSE: UNKNOWN
     Route: 064

REACTIONS (9)
  - BRADYCARDIA FOETAL [None]
  - BREECH PRESENTATION [None]
  - CAESAREAN SECTION [None]
  - CONGENITAL CHOROID PLEXUS CYST [None]
  - DRUG EXPOSURE DURING PREGNANCY [None]
  - ENDOTRACHEAL INTUBATION [None]
  - MATERNAL DRUGS AFFECTING FOETUS [None]
  - PREMATURE BABY [None]
  - STRABISMUS CONGENITAL [None]
